FAERS Safety Report 8914515 (Version 2)
Quarter: 2013Q1

REPORT INFORMATION
  Report Type: Spontaneous
  Country: GB (occurrence: GB)
  Receive Date: 20121119
  Receipt Date: 20130130
  Transmission Date: 20140127
  Serious: Yes (Other)
  Sender: FDA-Public Use
  Company Number: GB-JNJFOC-20121106480

PATIENT
  Age: 66 Year
  Sex: Male

DRUGS (3)
  1. ZYTIGA [Suspect]
     Indication: PROSTATE CANCER
     Route: 048
     Dates: start: 20121023
  2. PREDNISOLONE [Concomitant]
     Indication: PROSTATE CANCER
     Route: 048
     Dates: start: 20121023
  3. UNKNOWN MEDICATION [Concomitant]
     Indication: ANALGESIC THERAPY
     Route: 065
     Dates: start: 20121002

REACTIONS (1)
  - Syncope [Unknown]
